FAERS Safety Report 6211752-2 (Version None)
Quarter: 2009Q2

REPORT INFORMATION
  Report Type: 
  Country: None (occurrence: None)
  Receive Date: 20090528
  Receipt Date: 20090518
  Transmission Date: 20091009
  Serious: Yes (Hospitalization)
  Sender: FDA-Public Use
  Company Number: 2008AL009834

PATIENT
  Age: 62 Year
  Sex: Male

DRUGS (19)
  1. DIGOXIN [Suspect]
     Dosage: 0.25MG, DAILY, PO
     Route: 048
     Dates: start: 20061102, end: 20071121
  2. CLOTRIM [Concomitant]
  3. LIPITOR [Concomitant]
  4. FLONASE [Concomitant]
  5. NEXIUM [Concomitant]
  6. CARVEDILOL [Concomitant]
  7. SINGULAIR [Concomitant]
  8. ENALAPRIL [Concomitant]
  9. PROMETHAZINE [Concomitant]
  10. STRATTERA [Concomitant]
  11. PANTOPRAZOLE SODIUM [Concomitant]
  12. FLUTICASONE [Concomitant]
  13. COREG [Concomitant]
  14. ALBUTEROL [Concomitant]
  15. HYDROCORT [Concomitant]
  16. ALLEGRA [Concomitant]
  17. PRINIVIL [Concomitant]
  18. LISINOPRIL [Concomitant]
  19. METOPROLOL SUCCINATE [Concomitant]

REACTIONS (16)
  - ANHEDONIA [None]
  - ANOXIC ENCEPHALOPATHY [None]
  - ATRIAL FIBRILLATION [None]
  - CARDIAC ARREST [None]
  - COGNITIVE DISORDER [None]
  - CONFUSIONAL STATE [None]
  - DYSPNOEA [None]
  - ECONOMIC PROBLEM [None]
  - EMOTIONAL DISORDER [None]
  - MEMORY IMPAIRMENT [None]
  - MENTAL DISORDER [None]
  - MULTIPLE INJURIES [None]
  - PAIN [None]
  - STAPHYLOCOCCAL BACTERAEMIA [None]
  - TACHYCARDIA [None]
  - VENTRICULAR FIBRILLATION [None]
